FAERS Safety Report 17772950 (Version 1)
Quarter: 2020Q2

REPORT INFORMATION
  Report Type: Other
  Country: NO (occurrence: GB)
  Receive Date: 20200512
  Receipt Date: 20200512
  Transmission Date: 20200714
  Serious: Yes (Life-Threatening, Hospitalization, Other)
  Sender: FDA-Public Use
  Company Number: NO-GE HEALTHCARE LIFE SCIENCES-TCGN-UK-0904S-0001

PATIENT

DRUGS (4)
  1. TECHNESCAN LYOMAA [TECHNETIUM TC 99M ALBUMIN] [Suspect]
     Active Substance: TECHNETIUM TC-99M ALBUMIN AGGREGATED
     Indication: VENTILATION/PERFUSION SCAN
     Dosage: 2.5 ML, SINGLE
     Route: 042
     Dates: start: 20090406, end: 20090406
  2. TECHNESCAN LYOMAA [TECHNETIUM TC 99M ALBUMIN] [Suspect]
     Active Substance: TECHNETIUM TC-99M ALBUMIN AGGREGATED
     Indication: PULMONARY EMBOLISM
  3. DRYTEC (TECHNETIUM TC99M GENERATOR) [Suspect]
     Active Substance: TECHNETIUM TC-99M SODIUM PERTECHNETATE
     Indication: VENTILATION/PERFUSION SCAN
  4. DRYTEC (TECHNETIUM TC99M GENERATOR) [Suspect]
     Active Substance: TECHNETIUM TC-99M SODIUM PERTECHNETATE
     Indication: DIAGNOSTIC PROCEDURE
     Dosage: 50 MBQ, SINGLE
     Route: 042
     Dates: start: 20090406, end: 20090406

REACTIONS (5)
  - Cardiac arrest [Recovered/Resolved]
  - Malaise [Recovered/Resolved]
  - Caesarean section [Recovered/Resolved]
  - Dyspnoea [Recovered/Resolved]
  - Exposure during pregnancy [Recovered/Resolved]

NARRATIVE: CASE EVENT DATE: 20090406
